FAERS Safety Report 16189244 (Version 4)
Quarter: 2019Q3

REPORT INFORMATION
  Report Type: Report from Study
  Country: HK (occurrence: HK)
  Receive Date: 20190412
  Receipt Date: 20190821
  Transmission Date: 20191004
  Serious: Yes (Other)
  Sender: FDA-Public Use
  Company Number: HK-ROCHE-2292935

PATIENT
  Age: 51 Year
  Sex: Female

DRUGS (16)
  1. NOFLAGMA [Concomitant]
     Indication: PYREXIA
     Dosage: TAB 1
     Route: 048
     Dates: start: 20150327, end: 20150330
  2. VITAMIN C [Concomitant]
     Active Substance: ASCORBIC ACID
     Indication: INFLUENZA LIKE ILLNESS
  3. ENTECAVIR. [Concomitant]
     Active Substance: ENTECAVIR
     Indication: CHRONIC HEPATITIS B
     Route: 048
     Dates: start: 20110525, end: 20141001
  4. PARACETAMOL [Concomitant]
     Active Substance: ACETAMINOPHEN
     Indication: INFLUENZA LIKE ILLNESS
     Route: 048
     Dates: start: 20140926, end: 20140928
  5. VITAMIN B [Concomitant]
     Active Substance: VITAMIN B
     Indication: PYREXIA
     Dosage: TAB 1
     Route: 048
     Dates: start: 20150327, end: 20150330
  6. PEGINTERFERON ALFA-2A. [Suspect]
     Active Substance: PEGINTERFERON ALFA-2A
     Dosage: WEEKLY
     Route: 058
     Dates: start: 20140918, end: 20150521
  7. PARACETAMOL [Concomitant]
     Active Substance: ACETAMINOPHEN
     Indication: PYREXIA
     Route: 048
     Dates: start: 20150301, end: 20150330
  8. PEGINTERFERON ALFA-2A. [Suspect]
     Active Substance: PEGINTERFERON ALFA-2A
     Indication: CHRONIC HEPATITIS B
     Route: 058
     Dates: start: 20140904
  9. GASTROCAINE [Concomitant]
     Indication: INFLUENZA LIKE ILLNESS
  10. VITAMIN C [Concomitant]
     Active Substance: ASCORBIC ACID
     Indication: PYREXIA
     Dosage: TAB 1
     Route: 048
     Dates: start: 20150327, end: 20150330
  11. IRON SULPHATE [Concomitant]
     Active Substance: FERROUS SULFATE ANHYDROUS
     Dosage: TAB 1
     Route: 048
     Dates: start: 20150404
  12. PARACETAMOL [Concomitant]
     Active Substance: ACETAMINOPHEN
     Indication: MYALGIA
     Route: 048
     Dates: start: 20140905, end: 20140906
  13. GASTROCAINE [Concomitant]
     Indication: PYREXIA
     Route: 048
     Dates: start: 20150301, end: 20150330
  14. NOFLAGMA [Concomitant]
     Indication: INFLUENZA LIKE ILLNESS
  15. IRON SULPHATE [Concomitant]
     Active Substance: FERROUS SULFATE ANHYDROUS
     Indication: ANAEMIA
     Dosage: TAB 1
     Route: 048
     Dates: start: 20150327, end: 20150401
  16. VITAMIN B [Concomitant]
     Active Substance: VITAMIN B
     Indication: INFLUENZA LIKE ILLNESS

REACTIONS (3)
  - Protein S decreased [Recovered/Resolved]
  - Retinal vein occlusion [Recovered/Resolved]
  - Neutropenia [Recovered/Resolved]

NARRATIVE: CASE EVENT DATE: 20140918
